FAERS Safety Report 24993555 (Version 1)
Quarter: 2025Q1

REPORT INFORMATION
  Report Type: Report from Study
  Country: US (occurrence: US)
  Receive Date: 20250221
  Receipt Date: 20250221
  Transmission Date: 20250409
  Serious: Yes (Other)
  Sender: Pyros Pharmaceuticals
  Company Number: US-PYROS PHARMACEUTICALS, INC-2024-PYROS-US000128

PATIENT
  Age: 0 Year
  Sex: Male
  Weight: 11.34 kg

DRUGS (7)
  1. VIGAFYDE [Suspect]
     Active Substance: VIGABATRIN
     Indication: Infantile spasms
     Dosage: 200 MG (2 ML), BID
     Route: 048
     Dates: start: 20241018, end: 202411
  2. VIGAFYDE [Suspect]
     Active Substance: VIGABATRIN
     Dosage: 400 MG (4 ML), BID
     Route: 048
     Dates: start: 202411, end: 202411
  3. VIGAFYDE [Suspect]
     Active Substance: VIGABATRIN
     Dosage: 600 MG (6 ML), BID
     Route: 048
     Dates: start: 202411, end: 2025
  4. VIGAFYDE [Suspect]
     Active Substance: VIGABATRIN
     Dosage: 700 MG (7 ML), BID
     Route: 048
     Dates: start: 2025, end: 2025
  5. VIGAFYDE [Suspect]
     Active Substance: VIGABATRIN
     Dosage: 400 MG (4 ML), BID
     Route: 048
     Dates: start: 2025
  6. PREDNISONE [Concomitant]
     Active Substance: PREDNISONE
     Indication: Product used for unknown indication
     Dosage: 3.4 ML, TID
     Route: 048
  7. VITAMIN D3 [Concomitant]
     Active Substance: CHOLECALCIFEROL
     Indication: Product used for unknown indication
     Dosage: 2 ML, DAILY
     Route: 048

REACTIONS (7)
  - Hypopnoea [Unknown]
  - Therapeutic product effect incomplete [Not Recovered/Not Resolved]
  - Disorientation [Unknown]
  - Aggression [Unknown]
  - Infantile spitting up [Recovering/Resolving]
  - Hypotonia [Unknown]
  - Irritability [Unknown]

NARRATIVE: CASE EVENT DATE: 20241024
